FAERS Safety Report 18566376 (Version 1)
Quarter: 2020Q4

REPORT INFORMATION
  Report Type: Report from Study
  Country: FR (occurrence: FR)
  Receive Date: 20201201
  Receipt Date: 20201201
  Transmission Date: 20210114
  Serious: Yes (Other)
  Sender: FDA-Public Use
  Company Number: FR-MYLANLABS-2020M1097454

PATIENT
  Age: 49 Year
  Sex: Male

DRUGS (1)
  1. EMTRICITABINE/TENOFOVIR DISOPROXIL FUMARATE [Suspect]
     Active Substance: EMTRICITABINE\TENOFOVIR DISOPROXIL FUMARATE
     Indication: HIV INFECTION
     Dosage: 200MG/245MG,QD
     Route: 048
     Dates: start: 2011

REACTIONS (10)
  - Muscle spasms [Unknown]
  - Pain in extremity [Unknown]
  - Abdominal pain upper [Unknown]
  - Pain [Unknown]
  - Insomnia [Unknown]
  - Transient ischaemic attack [Unknown]
  - Polyarthritis [Unknown]
  - Weight decreased [Unknown]
  - Tooth loss [Unknown]
  - Pruritus [Unknown]

NARRATIVE: CASE EVENT DATE: 2016
